FAERS Safety Report 4442230-9 (Version None)
Quarter: 2004Q3

REPORT INFORMATION
  Report Type: 
  Country: None (occurrence: None)
  Receive Date: 20040903
  Receipt Date: 20040719
  Transmission Date: 20050211
  Serious: Yes (Other)
  Sender: FDA-Public Use
  Company Number: 2004UW14911

PATIENT
  Age: 68 Year
  Sex: Female
  Weight: 99.7913 kg

DRUGS (6)
  1. CRESTOR [Suspect]
     Indication: BLOOD CHOLESTEROL INCREASED
     Dosage: 5 MG QD PO
     Route: 048
     Dates: start: 20040501
  2. PLAVIX [Concomitant]
  3. ASPIRIN [Concomitant]
  4. CELEBREX [Concomitant]
  5. HEART PILL [Concomitant]
  6. STOOL SOFTENER [Concomitant]

REACTIONS (4)
  - BONE PAIN [None]
  - MUSCLE CRAMP [None]
  - URINE ODOUR ABNORMAL [None]
  - URINE OUTPUT DECREASED [None]
